FAERS Safety Report 23932383 (Version 2)
Quarter: 2024Q2

REPORT INFORMATION
  Report Type: Spontaneous
  Country: SE (occurrence: SE)
  Receive Date: 20240603
  Receipt Date: 20240614
  Transmission Date: 20240716
  Serious: Yes (Hospitalization, Other)
  Sender: FDA-Public Use
  Company Number: SE-ROCHE-3161221

PATIENT
  Age: 54 Year
  Sex: Male
  Weight: 129.5 kg

DRUGS (34)
  1. RITUXIMAB [Suspect]
     Active Substance: RITUXIMAB
     Indication: B-cell lymphoma
     Dosage: 375 MG/M2, CYCLIC EVERY 4 WEEKS, (DATE OF LAST DOSE PRIOR TO EVENT: 22FEB2022)
     Route: 042
     Dates: start: 20210902, end: 20211125
  2. RITUXIMAB [Suspect]
     Active Substance: RITUXIMAB
     Indication: Follicular lymphoma stage IV
     Dosage: 555 MG/M2, CYCLIC EVERY 4 WEEKS
     Route: 042
     Dates: start: 20211228, end: 20220222
  3. EPCORITAMAB [Suspect]
     Active Substance: EPCORITAMAB
     Indication: Follicular lymphoma stage IV
     Dosage: 0.16 MG (PRIMING DOSE)
     Route: 058
     Dates: start: 20210902, end: 20210902
  4. EPCORITAMAB [Suspect]
     Active Substance: EPCORITAMAB
     Dosage: 0.8 MG, DAILY INTERMEDIATE DOSE
     Route: 058
     Dates: start: 20210909, end: 20210909
  5. EPCORITAMAB [Suspect]
     Active Substance: EPCORITAMAB
     Dosage: 48 MG, WEEKLY FULL DOSE
     Route: 058
     Dates: start: 20210916, end: 20211118
  6. EPCORITAMAB [Suspect]
     Active Substance: EPCORITAMAB
     Dosage: 48 MG EVERY SECOND WEEK, FULL DOSE
     Route: 058
     Dates: start: 20211125, end: 20220405
  7. EPCORITAMAB [Suspect]
     Active Substance: EPCORITAMAB
     Dosage: 0.16 MG, DAILY (REPRIMING DOSE)
     Route: 058
     Dates: start: 20220519, end: 20220519
  8. EPCORITAMAB [Suspect]
     Active Substance: EPCORITAMAB
     Dosage: 0.8 MG, RP INTERMEDIATE DOSE
     Route: 058
     Dates: start: 20220527, end: 20220527
  9. EPCORITAMAB [Suspect]
     Active Substance: EPCORITAMAB
     Dosage: 0.16 MG, REPRIMING DOSE
     Route: 058
     Dates: start: 20220615, end: 20220615
  10. EPCORITAMAB [Suspect]
     Active Substance: EPCORITAMAB
     Dosage: 0.8 MG, SINGLE DOSE
     Route: 058
     Dates: start: 20220623, end: 20220623
  11. EPCORITAMAB [Suspect]
     Active Substance: EPCORITAMAB
     Dosage: 0.16 MG, REPRIMING DOSE
     Route: 058
     Dates: start: 20220915, end: 20220915
  12. EPCORITAMAB [Suspect]
     Active Substance: EPCORITAMAB
     Dosage: 0.8 MG, RP INTERMEDIATE DOSE
     Route: 058
     Dates: start: 20220922, end: 20220922
  13. BENDAMUSTINE [Suspect]
     Active Substance: BENDAMUSTINE
     Indication: Follicular lymphoma stage IV
     Dosage: 80 MG/M2, DAILY
     Route: 042
     Dates: start: 20210902, end: 20210903
  14. BENDAMUSTINE [Suspect]
     Active Substance: BENDAMUSTINE
     Dosage: 70 MG/M2, DAILY
     Route: 042
     Dates: start: 20211028, end: 20211029
  15. BENDAMUSTINE [Suspect]
     Active Substance: BENDAMUSTINE
     Dosage: 60 MG/M2, DAILY
     Route: 042
     Dates: start: 20220222, end: 20220223
  16. BENDAMUSTINE [Suspect]
     Active Substance: BENDAMUSTINE
     Dosage: 80 MG/M2, DAILY
     Route: 042
     Dates: start: 20210930, end: 20211001
  17. BENDAMUSTINE [Suspect]
     Active Substance: BENDAMUSTINE
     Dosage: 70 MG/M2, DAILY
     Route: 042
     Dates: start: 20211126, end: 20211126
  18. BENDAMUSTINE [Suspect]
     Active Substance: BENDAMUSTINE
     Dosage: 70 MG/KG, DAILY
     Route: 042
     Dates: start: 20211228, end: 20211229
  19. BENDAMUSTINE [Suspect]
     Active Substance: BENDAMUSTINE
     Dosage: 70 MG/M2, DAILY
     Route: 042
     Dates: start: 20211125, end: 20211125
  20. ACETAMINOPHEN [Concomitant]
     Active Substance: ACETAMINOPHEN
     Dosage: 1 G (22FEB2022, 19MAY2022, 27MAY2022, 15JUN2022 AND 23JUN2022)
     Dates: start: 20210902
  21. ACYCLOVIR [Concomitant]
     Active Substance: ACYCLOVIR
     Dosage: UNK
  22. BETAMETASON [BETAMETHASONE] [Concomitant]
     Dosage: 4 MG (ON DAY 1 OF EVERY CYCLE FROM 30SEP2021 TO 23FEB2022)
     Dates: start: 20210930, end: 20220223
  23. CETIRIZINE HYDROCHLORIDE [Concomitant]
     Active Substance: CETIRIZINE HYDROCHLORIDE
     Dosage: UNK
     Dates: start: 20220222, end: 20220623
  24. CETIRIZINE HYDROCHLORIDE [Concomitant]
     Active Substance: CETIRIZINE HYDROCHLORIDE
     Dosage: 10 MG
     Dates: start: 2018
  25. PREDNISONE [Concomitant]
     Active Substance: PREDNISONE
     Dosage: 100 MG
     Dates: start: 20220519
  26. SULFAMETHOXAZOLE\TRIMETHOPRIM [Concomitant]
     Active Substance: SULFAMETHOXAZOLE\TRIMETHOPRIM
     Dosage: UNK
     Dates: start: 20210907
  27. MOMETASONE FUROATE [Concomitant]
     Active Substance: MOMETASONE FUROATE
     Dosage: UNK
     Dates: start: 2018
  28. PIPERACILLIN SODIUM\TAZOBACTAM SODIUM [Concomitant]
     Active Substance: PIPERACILLIN SODIUM\TAZOBACTAM SODIUM
     Dosage: UNK
     Dates: start: 20220602, end: 20220710
  29. ALBUTEROL [Concomitant]
     Active Substance: ALBUTEROL
     Dosage: UNK
     Dates: start: 2000
  30. PEGFILGRASTIM [Concomitant]
     Active Substance: PEGFILGRASTIM
     Dosage: UNK
     Dates: start: 20220511, end: 20220511
  31. CIPROFLOXACIN [Concomitant]
     Active Substance: CIPROFLOXACIN
     Dosage: UNK
     Dates: start: 20220606, end: 20220611
  32. FILGRASTIM [Concomitant]
     Active Substance: FILGRASTIM
     Dosage: UNK
     Dates: start: 20220208, end: 20220209
  33. MOXIFLOXACIN [Concomitant]
     Active Substance: MOXIFLOXACIN
     Dosage: UNK
     Dates: start: 20220729, end: 20220803
  34. DOXYCYCLINE [Concomitant]
     Active Substance: DOXYCYCLINE\DOXYCYCLINE HYCLATE
     Dosage: UNK
     Dates: start: 20220726, end: 20220729

REACTIONS (3)
  - COVID-19 [Recovered/Resolved]
  - Pneumonia [Recovered/Resolved]
  - Febrile neutropenia [Recovered/Resolved]

NARRATIVE: CASE EVENT DATE: 20220308
